FAERS Safety Report 9906223 (Version 1)
Quarter: 2014Q1

REPORT INFORMATION
  Report Type: Report from Study
  Country: US (occurrence: US)
  Receive Date: 20140218
  Receipt Date: 20140218
  Transmission Date: 20141002
  Serious: Yes (Other)
  Sender: FDA-Public Use
  Company Number: US-ABBVIE-14P-163-1200242-00

PATIENT
  Age: 54 Year
  Sex: Female

DRUGS (5)
  1. HUMIRA [Suspect]
     Indication: BEHCET^S SYNDROME
  2. HUMIRA [Suspect]
  3. PRILOSEC [Concomitant]
     Indication: GASTROINTESTINAL DISORDER
  4. PREDNISONE [Concomitant]
     Indication: PRODUCT USED FOR UNKNOWN INDICATION
  5. PAIN MEDS [Concomitant]
     Indication: PRODUCT USED FOR UNKNOWN INDICATION

REACTIONS (10)
  - Osteoarthritis [Not Recovered/Not Resolved]
  - Synovial cyst [Recovered/Resolved]
  - Diarrhoea [Unknown]
  - Weight decreased [Unknown]
  - Arthralgia [Unknown]
  - Spinal column stenosis [Unknown]
  - Barrett^s oesophagus [Unknown]
  - Gastritis [Unknown]
  - Helicobacter infection [Unknown]
  - Low density lipoprotein increased [Recovered/Resolved]
